FAERS Safety Report 11447381 (Version 1)
Quarter: 2015Q3

REPORT INFORMATION
  Report Type: Spontaneous
  Country: US (occurrence: US)
  Receive Date: 20150902
  Receipt Date: 20150902
  Transmission Date: 20151125
  Serious: Yes (Other)
  Sender: FDA-Public Use
  Company Number: US-B.I. PHARMACEUTICALS,INC./RIDGEFIELD-2015-BI-47345BP

PATIENT
  Age: 74 Year
  Sex: Male
  Weight: 83 kg

DRUGS (1)
  1. TRADJENTA [Suspect]
     Active Substance: LINAGLIPTIN
     Indication: GLUCOSE TOLERANCE IMPAIRED
     Dosage: 5 MG
     Route: 048
     Dates: start: 2013

REACTIONS (7)
  - Fall [Recovered/Resolved]
  - Heart rate increased [Unknown]
  - Loss of consciousness [Recovered/Resolved]
  - Laceration [Unknown]
  - Laceration [Unknown]
  - Off label use [Unknown]
  - Syncope [Unknown]

NARRATIVE: CASE EVENT DATE: 2013
